FAERS Safety Report 14767466 (Version 2)
Quarter: 2018Q2

REPORT INFORMATION
  Report Type: Spontaneous
  Country: US (occurrence: US)
  Receive Date: 20180417
  Receipt Date: 20180420
  Transmission Date: 20180711
  Serious: Yes (Other)
  Sender: FDA-Public Use
  Company Number: US-PFIZER INC-2018154444

PATIENT
  Age: 68 Year
  Sex: Male
  Weight: 77.11 kg

DRUGS (3)
  1. TIKOSYN [Suspect]
     Active Substance: DOFETILIDE
     Indication: ATRIAL FIBRILLATION
     Dosage: 500 UG, 2X/DAY
     Route: 048
     Dates: start: 2017
  2. JANTOVEN [Concomitant]
     Active Substance: WARFARIN SODIUM
     Dosage: 0.5 MG, ALTERNATE DAY (ON SUNDAY, TUESDAY, THURSDAY, SATURDAY)
  3. JANTOVEN [Concomitant]
     Active Substance: WARFARIN SODIUM
     Indication: ATRIAL FIBRILLATION
     Dosage: 3 MG, ALTERNATE DAY (ON MONDAY, WEDNESDAY, FRIDAY)
     Route: 048

REACTIONS (4)
  - Amnesia [Not Recovered/Not Resolved]
  - Paranoia [Not Recovered/Not Resolved]
  - Condition aggravated [Not Recovered/Not Resolved]
  - Hostility [Not Recovered/Not Resolved]

NARRATIVE: CASE EVENT DATE: 2017
